FAERS Safety Report 17802411 (Version 1)
Quarter: 2020Q2

REPORT INFORMATION
  Report Type: Spontaneous
  Country: US (occurrence: US)
  Receive Date: 20200519
  Receipt Date: 20200519
  Transmission Date: 20200714
  Serious: Yes (Hospitalization)
  Sender: FDA-Public Use
  Company Number: None

PATIENT
  Age: 40 Year
  Sex: Male

DRUGS (1)
  1. METFORMIN (METFORMIN HCL 1000MG TAB,) [Suspect]
     Active Substance: METFORMIN HYDROCHLORIDE
     Indication: DIABETES MELLITUS
     Route: 048
     Dates: start: 20191129, end: 20200312

REACTIONS (2)
  - Lactic acidosis [None]
  - Dehydration [None]

NARRATIVE: CASE EVENT DATE: 20200412
